FAERS Safety Report 10866154 (Version 2)
Quarter: 2015Q2

REPORT INFORMATION
  Report Type: Spontaneous
  Country: FR (occurrence: None)
  Receive Date: 20150220
  Receipt Date: 20150519
  Transmission Date: 20150821
  Serious: Yes (Hospitalization, Other)
  Sender: FDA-Public Use
  Company Number: NSR_01842_2015

PATIENT
  Age: 62 Year
  Sex: Male

DRUGS (2)
  1. ALLOPURINOL (ALLOPURINOL) [Suspect]
     Active Substance: ALLOPURINOL
     Indication: PRODUCT USED FOR UNKNOWN INDICATION
     Dosage: DF
  2. AMOXICILLIN (AMOXICILLIN) [Suspect]
     Active Substance: AMOXICILLIN
     Indication: ODYNOPHAGIA

REACTIONS (5)
  - Histiocytosis haematophagic [None]
  - Thyroiditis [None]
  - Drug reaction with eosinophilia and systemic symptoms [None]
  - Hyperthyroidism [None]
  - Human herpesvirus 6 infection [None]
